FAERS Safety Report 6438667-9 (Version None)
Quarter: 2009Q4

REPORT INFORMATION
  Report Type: 
  Country: None (occurrence: None)
  Receive Date: 20091113
  Receipt Date: 20091105
  Transmission Date: 20100525
  Serious: Yes (Other)
  Sender: FDA-Public Use
  Company Number: US-ASTRAZENECA-2008UW27519

PATIENT
  Age: 50 Year
  Sex: Male
  Weight: 102.1 kg

DRUGS (5)
  1. SEROQUEL [Suspect]
     Indication: BIPOLAR DISORDER
     Dosage: 100 MG TO 400 MG
     Route: 048
     Dates: start: 20050501, end: 20071101
  2. SEROQUEL [Suspect]
     Indication: SCHIZOPHRENIA, PARANOID TYPE
     Dosage: 100 MG TO 400 MG
     Route: 048
     Dates: start: 20050501, end: 20071101
  3. ABILIFY [Concomitant]
     Dates: start: 20080720
  4. RISPERDAL [Concomitant]
     Dosage: 2 MG TO 4 MG.
     Dates: start: 20041130, end: 20070803
  5. CLONAZEPAM [Concomitant]

REACTIONS (2)
  - DIABETES MELLITUS [None]
  - THROMBOSIS [None]
